FAERS Safety Report 8557805-5 (Version None)
Quarter: 2012Q3

REPORT INFORMATION
  Report Type: 
  Country: None (occurrence: None)
  Receive Date: 20120801
  Receipt Date: 20111208
  Transmission Date: 20120928
  Serious: No
  Sender: FDA-Public Use
  Company Number: US-FOUGERA-2011FO000050

PATIENT
  Age: 88 Year
  Sex: Male
  Weight: 95.26 kg

DRUGS (8)
  1. BETAMETHASONE DIPROPIONATE [Suspect]
     Indication: FUNGAL INFECTION
     Route: 061
     Dates: start: 20110701, end: 20111207
  2. CLOTRIMAZOLE [Suspect]
     Indication: SKIN IRRITATION
     Route: 061
     Dates: start: 20110701
  3. ASPIRIN [Concomitant]
     Indication: PRODUCT USED FOR UNKNOWN INDICATION
  4. BETAMETHASONE DIPROPIONATE [Suspect]
     Indication: SKIN IRRITATION
     Route: 061
     Dates: start: 20110701, end: 20111207
  5. HYDROCHLOROTHIAZIDE [Concomitant]
     Indication: HYPERTENSION
  6. SIMVASTATIN [Concomitant]
     Indication: BLOOD CHOLESTEROL
  7. CLOTRIMAZOLE [Suspect]
     Indication: FUNGAL INFECTION
     Route: 061
     Dates: start: 20110701
  8. SYNTHROID [Concomitant]
     Indication: THYROID DISORDER

REACTIONS (3)
  - RASH [None]
  - RASH PRURITIC [None]
  - JOINT SWELLING [None]
